FAERS Safety Report 8804708 (Version 1)
Quarter: 2012Q4

REPORT INFORMATION
  Report Type: 
  Country: US (occurrence: US)
  Receive Date: 20120924
  Receipt Date: 20120924
  Transmission Date: 20130627
  Serious: No
  Sender: FDA-Public Use
  Company Number: US-009507513-1209USA005652

PATIENT
  Age: 56 Year
  Sex: Male

DRUGS (1)
  1. AFRIN [Suspect]
     Route: 045

REACTIONS (1)
  - Increased upper airway secretion [Unknown]
